FAERS Safety Report 7989075-0 (Version None)
Quarter: 2011Q4

REPORT INFORMATION
  Report Type: 
  Country: None (occurrence: None)
  Receive Date: 20111219
  Receipt Date: 20111208
  Transmission Date: 20120403
  Serious: Yes (Hospitalization)
  Sender: FDA-Public Use
  Company Number: US-US-EMD SERONO, INC.-7101092

PATIENT
  Sex: Female
  Weight: 89 kg

DRUGS (6)
  1. NOVOLOG [Concomitant]
     Indication: DIABETES MELLITUS
  2. LANTUS [Concomitant]
     Indication: DIABETES MELLITUS
  3. SYNTHROID [Concomitant]
     Indication: HYPOTHYROIDISM
  4. REBIF [Suspect]
     Indication: MULTIPLE SCLEROSIS
     Route: 058
     Dates: start: 20060724
  5. ALBUTEROL INHALER [Concomitant]
     Indication: ASTHMA
  6. SOLU-MEDROL [Suspect]
     Indication: MULTIPLE SCLEROSIS RELAPSE
     Dates: start: 20111101

REACTIONS (7)
  - HYPERSENSITIVITY [None]
  - TREMOR [None]
  - HYPERHIDROSIS [None]
  - TACHYCARDIA [None]
  - MULTIPLE SCLEROSIS RELAPSE [None]
  - BLOOD PRESSURE DECREASED [None]
  - GASTRITIS [None]
